FAERS Safety Report 16213108 (Version 1)
Quarter: 2019Q2

REPORT INFORMATION
  Report Type: Spontaneous
  Country: US (occurrence: US)
  Receive Date: 20190418
  Receipt Date: 20190418
  Transmission Date: 20190711
  Serious: Yes (Hospitalization)
  Sender: FDA-Public Use
  Company Number: US-TEVA-2019-US-1038535

PATIENT
  Age: 50 Year
  Sex: Female

DRUGS (3)
  1. EPINEPHRINE. [Suspect]
     Active Substance: EPINEPHRINE
     Dosage: 2MICROG/KG/MIN; A CONTINUOUS INFUSION DRIP
     Route: 050
  2. EPINEPHRINE. [Suspect]
     Active Substance: EPINEPHRINE
     Dosage: TITRATED UP TO 3 MICROG/KG/MIN
     Route: 050
  3. EPINEPHRINE. [Suspect]
     Active Substance: EPINEPHRINE
     Indication: ANAPHYLACTIC SHOCK
     Dosage: 4 DOSES; CUMULATIVE DOSE TO FIRST REACTION :7MG
     Route: 030

REACTIONS (1)
  - Stress cardiomyopathy [Unknown]
